FAERS Safety Report 8223415-2 (Version None)
Quarter: 2012Q1

REPORT INFORMATION
  Report Type: 
  Country: None (occurrence: None)
  Receive Date: 20120321
  Receipt Date: 20120312
  Transmission Date: 20120608
  Serious: Yes (Hospitalization, Other)
  Sender: FDA-Public Use
  Company Number: US-BAYER-2011-089537

PATIENT
  Age: 44 Year
  Sex: Female
  Weight: 84 kg

DRUGS (5)
  1. FLAGYL [Concomitant]
     Dosage: UNK
     Dates: start: 20070701
  2. HYDROCODONE [Concomitant]
  3. YAZ [Suspect]
     Indication: CONTRACEPTION
     Dosage: UNK
     Dates: start: 20070101
  4. YASMIN [Suspect]
     Indication: CONTRACEPTION
     Dosage: UNK
     Dates: start: 20070101
  5. CIPROFLOXACIN HYDROCHLORIDE [Concomitant]
     Dosage: UNK
     Dates: start: 20070701

REACTIONS (5)
  - PAIN [None]
  - CHOLECYSTITIS [None]
  - CHOLECYSTECTOMY [None]
  - GASTRIC DISORDER [None]
  - EMOTIONAL DISTRESS [None]
